FAERS Safety Report 7842137-0 (Version None)
Quarter: 2011Q4

REPORT INFORMATION
  Report Type: 
  Country: None (occurrence: None)
  Receive Date: 20111024
  Receipt Date: 20111024
  Transmission Date: 20120403
  Serious: No
  Sender: FDA-Public Use
  Company Number: None

PATIENT
  Sex: Female
  Weight: 75.7507 kg

DRUGS (1)
  1. ANASTROZOLE [Suspect]
     Indication: BREAST CANCER
     Dosage: 1MG ONE DAILY 10 OR 11 MONTHS

REACTIONS (8)
  - ARTHRALGIA [None]
  - JOINT SWELLING [None]
  - MUSCLE SWELLING [None]
  - INITIAL INSOMNIA [None]
  - VULVOVAGINAL DISCOMFORT [None]
  - VISION BLURRED [None]
  - MYALGIA [None]
  - VISUAL ACUITY REDUCED [None]
